FAERS Safety Report 14364636 (Version 1)
Quarter: 2018Q1

REPORT INFORMATION
  Report Type: Spontaneous
  Country: US (occurrence: US)
  Receive Date: 20180106
  Receipt Date: 20180106
  Transmission Date: 20180509
  Serious: No
  Sender: FDA-Public Use
  Company Number: None

PATIENT
  Age: 66 Year
  Sex: Male
  Weight: 72 kg

DRUGS (4)
  1. FLUTICASONE 50 MCG NASAL SP [Suspect]
     Active Substance: FLUTICASONE
     Indication: PULMONARY CONGESTION
     Dosage: ?          QUANTITY:1 SPRAY(S);OTHER ROUTE:SPAY EACH NOSTRIL?
     Dates: start: 20171228, end: 20171229
  2. ACIDOPHILUS PROBIOTIC [Concomitant]
  3. CENTRUM SILVER ONE-A-DAY VITAMIN [Concomitant]
  4. FLUTICASONE 50 MCG NASAL SP [Suspect]
     Active Substance: FLUTICASONE
     Indication: RHINORRHOEA
     Dosage: ?          QUANTITY:1 SPRAY(S);OTHER ROUTE:SPAY EACH NOSTRIL?
     Dates: start: 20171228, end: 20171229

REACTIONS (4)
  - Therapy cessation [None]
  - Epistaxis [None]
  - Haemoptysis [None]
  - Productive cough [None]

NARRATIVE: CASE EVENT DATE: 20171229
